FAERS Safety Report 12332456 (Version 1)
Quarter: 2016Q2

REPORT INFORMATION
  Report Type: Spontaneous
  Country: US (occurrence: US)
  Receive Date: 20160504
  Receipt Date: 20160504
  Transmission Date: 20160815
  Serious: No
  Sender: FDA-Public Use
  Company Number: US-ROCHE-1665106

PATIENT
  Age: 77 Year
  Sex: Male
  Weight: 62.2 kg

DRUGS (7)
  1. ESBRIET [Suspect]
     Active Substance: PIRFENIDONE
     Route: 048
     Dates: start: 20150930
  2. FLUTICASONE PROPIONATE. [Concomitant]
     Active Substance: FLUTICASONE PROPIONATE
     Route: 045
     Dates: start: 20140108
  3. ALBUTEROL. [Concomitant]
     Active Substance: ALBUTEROL
  4. ESBRIET [Suspect]
     Active Substance: PIRFENIDONE
     Indication: IDIOPATHIC PULMONARY FIBROSIS
     Dosage: 3 CAPSULES 3 TIMES A DAY
     Route: 048
     Dates: start: 20151021
  5. BENZONATATE. [Concomitant]
     Active Substance: BENZONATATE
     Indication: COUGH
     Dosage: 2 TO 3 PER DAY
     Route: 048
     Dates: start: 20150623
  6. CRESTOR [Concomitant]
     Active Substance: ROSUVASTATIN CALCIUM
     Route: 048
  7. PREDNISONE. [Concomitant]
     Active Substance: PREDNISONE

REACTIONS (6)
  - Decreased appetite [Not Recovered/Not Resolved]
  - Rash [Recovered/Resolved]
  - Fatigue [Not Recovered/Not Resolved]
  - Fatigue [Unknown]
  - Dry skin [Unknown]
  - Cough [Unknown]

NARRATIVE: CASE EVENT DATE: 20150930
